FAERS Safety Report 12215005 (Version 1)
Quarter: 2016Q1

REPORT INFORMATION
  Report Type: Report from Study
  Country: US (occurrence: US)
  Receive Date: 20160328
  Receipt Date: 20160328
  Transmission Date: 20160526
  Serious: Yes (Other)
  Sender: FDA-Public Use
  Company Number: ADR-2014-01446

PATIENT
  Age: 52 Year
  Sex: Female

DRUGS (4)
  1. CLONIDINE. [Suspect]
     Active Substance: CLONIDINE
     Dosage: 199.87 MCG/DAY
     Route: 037
  2. COMPOUNDED BACLOFEN INTRATHECAL [Suspect]
     Active Substance: BACLOFEN
     Dosage: 599.6 MCG/DAY
     Route: 037
  3. BUPIVACAINE [Suspect]
     Active Substance: BUPIVACAINE
     Dosage: 7.195 MG/DAY
     Route: 037
  4. PRIALT [Suspect]
     Active Substance: ZICONOTIDE ACETATE
     Dosage: 0.3997MCG/DAY
     Route: 037

REACTIONS (2)
  - Pain [Recovered/Resolved with Sequelae]
  - Medical device site pain [Recovered/Resolved with Sequelae]

NARRATIVE: CASE EVENT DATE: 20140605
